FAERS Safety Report 7938253-5 (Version None)
Quarter: 2011Q4

REPORT INFORMATION
  Report Type: 
  Country: None (occurrence: None)
  Receive Date: 20111123
  Receipt Date: 20111117
  Transmission Date: 20120403
  Serious: Yes (Other)
  Sender: FDA-Public Use
  Company Number: CHPA2011US016351

PATIENT
  Age: 63 Year
  Sex: Female

DRUGS (1)
  1. BENEFIBER PLUS HEART HEALTH [Suspect]
     Dosage: 1 DF, QD
     Route: 048
     Dates: start: 20110101, end: 20110101

REACTIONS (3)
  - OFF LABEL USE [None]
  - WEIGHT DECREASED [None]
  - EXPIRED DRUG ADMINISTERED [None]
